FAERS Safety Report 6806909-3 (Version None)
Quarter: 2010Q2

REPORT INFORMATION
  Report Type: 
  Country: None (occurrence: None)
  Receive Date: 20100629
  Receipt Date: 20080602
  Transmission Date: 20101027
  Serious: No
  Sender: FDA-Public Use
  Company Number: US-PFIZER INC-2008046864

PATIENT
  Age: 34 Year
  Sex: Female

DRUGS (2)
  1. XANAX [Suspect]
     Indication: ANXIETY
     Route: 048
  2. DEXTROMETHORPHAN/PARACETAMOL/PHENYLEPHRINE [Suspect]
     Indication: NASOPHARYNGITIS
     Dosage: 2 DF
     Route: 048
     Dates: start: 20080426

REACTIONS (3)
  - CRYING [None]
  - DEPRESSED MOOD [None]
  - SOMNOLENCE [None]
